FAERS Safety Report 7214227-7 (Version None)
Quarter: 2011Q1

REPORT INFORMATION
  Report Type: 
  Country: None (occurrence: None)
  Receive Date: 20110107
  Receipt Date: 20101227
  Transmission Date: 20110831
  Serious: Yes (Hospitalization)
  Sender: FDA-Public Use
  Company Number: FR-TYCO HEALTHCARE/MALLINCKRODT-T201002496

PATIENT
  Sex: Female
  Weight: 52 kg

DRUGS (1)
  1. OPTIJECT [Suspect]
     Indication: COMPUTERISED TOMOGRAM
     Dosage: 65 ML, SINGLE
     Route: 042
     Dates: start: 20101222, end: 20101222

REACTIONS (2)
  - RASH [None]
  - ANGIOEDEMA [None]
